FAERS Safety Report 6802028-0 (Version None)
Quarter: 2010Q2

REPORT INFORMATION
  Report Type: 
  Country: None (occurrence: None)
  Receive Date: 20100629
  Receipt Date: 20071130
  Transmission Date: 20101027
  Serious: Yes (Hospitalization, Other)
  Sender: FDA-Public Use
  Company Number: US-PFIZER INC-2007069071

PATIENT
  Sex: Male
  Weight: 72 kg

DRUGS (1)
  1. BEXTRA [Suspect]
     Dates: start: 20020101

REACTIONS (4)
  - CARDIAC FAILURE [None]
  - DEPRESSION [None]
  - MUSCLE DISORDER [None]
  - MYOCARDIAL INFARCTION [None]
